FAERS Safety Report 14704515 (Version 2)
Quarter: 2018Q2

REPORT INFORMATION
  Report Type: Spontaneous
  Country: US (occurrence: US)
  Receive Date: 20180402
  Receipt Date: 20180419
  Transmission Date: 20180711
  Serious: Yes (Other)
  Sender: FDA-Public Use
  Company Number: US-FRESENIUS MEDICAL CARE RENAL THERAPIES GROUP-FMC-1803-000600

PATIENT
  Age: 44 Year
  Sex: Female
  Weight: 40 kg

DRUGS (13)
  1. DRONABINOL. [Concomitant]
     Active Substance: DRONABINOL
  2. DELFLEX WITH DEXTROSE 1.5% LOW MAGNESIUM LOW CALCIUM [Suspect]
     Active Substance: CALCIUM CHLORIDE\DEXTROSE\MAGNESIUM CHLORIDE\SODIUM CHLORIDE\SODIUM LACTATE
     Indication: END STAGE RENAL DISEASE
     Dosage: 5 EXCHANGES OF 2000ML
     Route: 033
     Dates: start: 20150817
  3. ASPRIN [Concomitant]
     Active Substance: ASPIRIN
  4. ALPRAZOLAM. [Concomitant]
     Active Substance: ALPRAZOLAM
  5. ATORVASTATIN [Concomitant]
     Active Substance: ATORVASTATIN
  6. CALCITRIOL. [Concomitant]
     Active Substance: CALCITRIOL
  7. CHOLECALCIFEROL [Concomitant]
     Active Substance: CHOLECALCIFEROL
  8. DAPTOMYCIN. [Concomitant]
     Active Substance: DAPTOMYCIN
  9. DARUNAVIR [Concomitant]
     Active Substance: DARUNAVIR
  10. DOLUTEGRAVIR [Concomitant]
     Active Substance: DOLUTEGRAVIR
  11. ERTAPENEM. [Concomitant]
     Active Substance: ERTAPENEM SODIUM
  12. CLOPIDOGREL [Concomitant]
     Active Substance: CLOPIDOGREL BISULFATE
  13. DELFLEX WITH DEXTROSE 2.5% LOW MAGNESIUM LOW CALCIUM [Suspect]
     Active Substance: CALCIUM CHLORIDE\DEXTROSE\MAGNESIUM CHLORIDE\SODIUM CHLORIDE\SODIUM LACTATE
     Indication: END STAGE RENAL DISEASE
     Dosage: 5 EXCHANGES OF 2000ML
     Route: 033
     Dates: start: 20150817

REACTIONS (2)
  - Peritonitis bacterial [Recovering/Resolving]
  - Abdominal pain [Recovering/Resolving]

NARRATIVE: CASE EVENT DATE: 20180307
